FAERS Safety Report 6318385-8 (Version None)
Quarter: 2009Q3

REPORT INFORMATION
  Report Type: 
  Country: None (occurrence: None)
  Receive Date: 20090821
  Receipt Date: 20090810
  Transmission Date: 20100115
  Serious: Yes (Death)
  Sender: FDA-Public Use
  Company Number: AU-PFIZER INC-2009254277

PATIENT

DRUGS (3)
  1. SERTRALINE HCL [Suspect]
  2. PIMOZIDE [Suspect]
  3. MOCLOBEMIDE [Suspect]

REACTIONS (2)
  - COMPLETED SUICIDE [None]
  - DRUG TOXICITY [None]
